FAERS Safety Report 11148404 (Version 3)
Quarter: 2016Q1

REPORT INFORMATION
  Report Type: Spontaneous
  Country: GB (occurrence: GB)
  Receive Date: 20150527
  Receipt Date: 20160202
  Transmission Date: 20160525
  Serious: Yes (Death, Hospitalization, Other)
  Sender: FDA-Public Use
  Company Number: 2015CVI00009

PATIENT
  Age: 73 Year
  Sex: Female

DRUGS (13)
  1. ZESTRIL [Suspect]
     Active Substance: LISINOPRIL
  2. OLYSIO [Suspect]
     Active Substance: SIMEPREVIR
     Route: 048
     Dates: start: 20140906
  3. DAKLINZA [Suspect]
     Active Substance: DACLATASVIR
     Route: 048
     Dates: start: 20141016, end: 201412
  4. SOFOSBUVIR [Suspect]
     Active Substance: SOFOSBUVIR
     Route: 048
     Dates: start: 20140503, end: 20140726
  5. CALCIUM [Concomitant]
     Active Substance: CALCIUM
  6. LIPITOR [Suspect]
     Active Substance: ATORVASTATIN CALCIUM
  7. LOPRESSOR [Suspect]
     Active Substance: METOPROLOL TARTRATE
  8. FEMARA [Suspect]
     Active Substance: LETROZOLE
  9. ZANTAC [Suspect]
     Active Substance: RANITIDINE HYDROCHLORIDE
     Indication: PRODUCT USED FOR UNKNOWN INDICATION
  10. AMLODIPINE [Suspect]
     Active Substance: AMLODIPINE BESYLATE
  11. SENNA [Concomitant]
     Active Substance: SENNA LEAF\SENNOSIDES\SENNOSIDES A AND B
  12. CETIRIZINE HYDROCHLORIDE. [Suspect]
     Active Substance: CETIRIZINE HYDROCHLORIDE
  13. SOFOSBUVIR [Suspect]
     Active Substance: SOFOSBUVIR
     Route: 048
     Dates: start: 20140906

REACTIONS (3)
  - General physical health deterioration [Unknown]
  - Acute kidney injury [Fatal]
  - Renal impairment [Unknown]
